FAERS Safety Report 8064212-0 (Version None)
Quarter: 2012Q1

REPORT INFORMATION
  Report Type: 
  Country: None (occurrence: None)
  Receive Date: 20120123
  Receipt Date: 20120118
  Transmission Date: 20120608
  Serious: Yes (Death, Other)
  Sender: FDA-Public Use
  Company Number: US-BAYER-200940199NA

PATIENT
  Age: 20 Year
  Sex: Female
  Weight: 43.537 kg

DRUGS (18)
  1. ACYCLOVIR [Concomitant]
  2. CYCLOSPORINE [Concomitant]
     Dosage: UNK
  3. DOPAMINE HCL [Concomitant]
  4. AMOXICILLIN [Concomitant]
  5. CARVEDILOL [Concomitant]
     Dosage: UNK
  6. ENALAPRIL MALEATE [Concomitant]
     Dosage: UNK
  7. TRASYLOL [Suspect]
     Indication: CORONARY ARTERY BYPASS
     Dosage: UNK
     Route: 042
     Dates: start: 20021001
  8. EDECRIN [Concomitant]
  9. NYSTATIN [Concomitant]
     Dosage: UNK
  10. LASIX [Concomitant]
     Dosage: UNK
  11. PREDNISONE [Concomitant]
  12. ACETYLSALICYLIC ACID SRT [Concomitant]
     Dosage: UNK
  13. NEORAL [Concomitant]
  14. MILRINONE [Concomitant]
  15. VALGANCICLOVIR [Concomitant]
  16. DIGOXIN [Concomitant]
  17. HYDRALAZINE HCL [Concomitant]
  18. RAPAMUNE [Concomitant]

REACTIONS (14)
  - STRESS [None]
  - FEAR [None]
  - PAIN [None]
  - MULTI-ORGAN FAILURE [None]
  - DEPRESSION [None]
  - INJURY [None]
  - RENAL INJURY [None]
  - ANHEDONIA [None]
  - RENAL FAILURE [None]
  - EMOTIONAL DISTRESS [None]
  - RENAL IMPAIRMENT [None]
  - DEATH [None]
  - ANXIETY [None]
  - UNEVALUABLE EVENT [None]
